FAERS Safety Report 6341173-3 (Version None)
Quarter: 2009Q3

REPORT INFORMATION
  Report Type: 
  Country: None (occurrence: None)
  Receive Date: 20090904
  Receipt Date: 20090313
  Transmission Date: 20100115
  Serious: Yes (Other)
  Sender: FDA-Public Use
  Company Number: A0774187A

PATIENT
  Sex: Male

DRUGS (1)
  1. REQUIP [Suspect]
     Route: 065

REACTIONS (1)
  - HALLUCINATION, VISUAL [None]
